FAERS Safety Report 6713422-0 (Version None)
Quarter: 2010Q2

REPORT INFORMATION
  Report Type: 
  Country: None (occurrence: None)
  Receive Date: 20100506
  Receipt Date: 20100430
  Transmission Date: 20101027
  Serious: Yes (Hospitalization)
  Sender: FDA-Public Use
  Company Number: TN-ROCHE-700988

PATIENT
  Sex: Female

DRUGS (4)
  1. PEGASYS [Suspect]
     Dosage: FREQUENCY: PER WEEK
     Route: 058
     Dates: start: 20090122, end: 20100113
  2. PEGASYS [Suspect]
     Dosage: DOSE REDUCED
     Route: 058
  3. RIBAVIRIN [Suspect]
     Dosage: DRUG REPORTED: RIBAVIRINE, FREQUENCY: PER DAY
     Route: 048
     Dates: start: 20090122, end: 20090122
  4. CAPTOPRIL [Concomitant]
     Route: 048

REACTIONS (1)
  - LYMPH NODE TUBERCULOSIS [None]
